FAERS Safety Report 8777382 (Version 1)
Quarter: 2012Q4

REPORT INFORMATION
  Report Type: 
  Country: CN (occurrence: CN)
  Receive Date: 20120911
  Receipt Date: 20120911
  Transmission Date: 20130627
  Serious: Yes (Other)
  Sender: FDA-Public Use
  Company Number: CN-PFIZER INC-2012217971

PATIENT
  Age: 70 Year
  Sex: Male
  Weight: 56 kg

DRUGS (1)
  1. TAZOCIN [Suspect]
     Dosage: 4.5 g, 3x/day

REACTIONS (1)
  - White blood cell count decreased [Recovered/Resolved]
